FAERS Safety Report 11294758 (Version 1)
Quarter: 2015Q3

REPORT INFORMATION
  Report Type: Spontaneous
  Country: US (occurrence: None)
  Receive Date: 20150722
  Receipt Date: 20150722
  Transmission Date: 20151125
  Serious: Yes (Disabling, Other)
  Sender: FDA-Public Use
  Company Number: None

PATIENT
  Age: 35 Year
  Sex: Female
  Weight: 62.6 kg

DRUGS (10)
  1. NEUTROGENA OIL FREE ACNE WASH [Suspect]
     Active Substance: SALICYLIC ACID
     Indication: ACNE
     Dates: start: 20150717, end: 20150718
  2. DOXYCYCLINE. [Concomitant]
     Active Substance: DOXYCYCLINE
  3. ACYCLOVIR. [Concomitant]
     Active Substance: ACYCLOVIR
  4. COCONUT OIL [Concomitant]
     Active Substance: COCONUT OIL
  5. RIZATRIPTAN. [Concomitant]
     Active Substance: RIZATRIPTAN
  6. IBUPROFEN. [Concomitant]
     Active Substance: IBUPROFEN
  7. CATAFLAM [Concomitant]
     Active Substance: DICLOFENAC POTASSIUM
  8. OMEGA 3 [Concomitant]
     Active Substance: OMEGA-3 FATTY ACIDS
  9. FLUCONAZOLE. [Concomitant]
     Active Substance: FLUCONAZOLE
  10. MULTIVITAMINS [Concomitant]
     Active Substance: VITAMINS

REACTIONS (9)
  - Application site vesicles [None]
  - Fungal infection [None]
  - Viral infection [None]
  - Application site pain [None]
  - Application site swelling [None]
  - Application site rash [None]
  - Pyrexia [None]
  - Application site erythema [None]
  - Purulence [None]

NARRATIVE: CASE EVENT DATE: 20150719
